FAERS Safety Report 4378884-5 (Version None)
Quarter: 2004Q2

REPORT INFORMATION
  Report Type: 
  Country: None (occurrence: None)
  Receive Date: 20040616
  Receipt Date: 20040518
  Transmission Date: 20050107
  Serious: Yes (Hospitalization)
  Sender: FDA-Public Use
  Company Number: JP-MERCK-0405USA01345

PATIENT
  Sex: Female

DRUGS (6)
  1. FOSAMAX [Suspect]
     Indication: OSTEOPOROSIS
     Route: 048
  2. FOSAMAX [Suspect]
     Route: 048
     Dates: start: 20040101
  3. ALFACALCIDOL [Suspect]
     Route: 048
  4. CARBOCYSTEINE [Suspect]
     Route: 048
  5. LANSOPRAZOLE [Suspect]
     Route: 048
  6. NILVADIPINE [Suspect]
     Route: 048

REACTIONS (1)
  - OEDEMA PERIPHERAL [None]
